FAERS Safety Report 15451112 (Version 1)
Quarter: 2018Q4

REPORT INFORMATION
  Report Type: Other
  Country: ES (occurrence: ES)
  Receive Date: 20181001
  Receipt Date: 20181001
  Transmission Date: 20190204
  Serious: Yes (Hospitalization, Other)
  Sender: FDA-Public Use
  Company Number: ES-APOTEX-2018AP021435

PATIENT
  Age: 47 Year
  Sex: Male

DRUGS (4)
  1. PARACETAMOL [Suspect]
     Active Substance: ACETAMINOPHEN
     Indication: PYREXIA
     Dosage: UNK
     Route: 048
     Dates: start: 20160121, end: 20160129
  2. CEFTRIAXON [Interacting]
     Active Substance: CEFTRIAXONE
     Indication: URINARY TRACT INFECTION
     Dosage: UNK
     Route: 065
     Dates: start: 20160125, end: 20160129
  3. IBUPROFEN. [Interacting]
     Active Substance: IBUPROFEN
     Indication: PYREXIA
     Dosage: 600 MG, TID (EVERY EIGHT HOURS)
     Route: 048
     Dates: start: 20160121, end: 20160129
  4. TOBRAMICIN [Interacting]
     Active Substance: TOBRAMYCIN SULFATE
     Indication: URINARY TRACT INFECTION
     Dosage: UNK
     Route: 065
     Dates: start: 20160125, end: 20160129

REACTIONS (1)
  - Acute kidney injury [Recovered/Resolved]

NARRATIVE: CASE EVENT DATE: 20160129
